FAERS Safety Report 22367184 (Version 2)
Quarter: 2023Q2

REPORT INFORMATION
  Report Type: Spontaneous
  Country: US (occurrence: US)
  Receive Date: 20230525
  Receipt Date: 20230604
  Transmission Date: 20230722
  Serious: Yes (Other)
  Sender: FDA-Public Use
  Company Number: US-TEVA-2023-US-2889357

PATIENT
  Age: 62 Year
  Sex: Male

DRUGS (1)
  1. WARFARIN [Suspect]
     Active Substance: WARFARIN
     Indication: Deep vein thrombosis
     Route: 065

REACTIONS (4)
  - Anticoagulant-related nephropathy [Recovering/Resolving]
  - Haematuria [Recovered/Resolved]
  - Renal tubular necrosis [Recovering/Resolving]
  - Renal haemorrhage [Unknown]
